FAERS Safety Report 9153579 (Version 4)
Quarter: 2013Q4

REPORT INFORMATION
  Report Type: Report from Study
  Country: US (occurrence: US)
  Receive Date: 20130311
  Receipt Date: 20131230
  Transmission Date: 20140711
  Serious: Yes (Disabling)
  Sender: FDA-Public Use
  Company Number: US-BAYER-2013-027467

PATIENT
  Age: 64 Year
  Sex: Male

DRUGS (4)
  1. STIVARGA [Suspect]
     Indication: COLON CANCER
     Dosage: 40 MG, 4 TABLETS, DAILY
     Route: 048
     Dates: start: 20130128, end: 20130211
  2. STIVARGA [Suspect]
     Indication: COLON CANCER
     Dosage: 120 MG, QD  (3 TABLETS DAILY)
     Route: 048
     Dates: start: 20130309, end: 201303
  3. STIVARGA [Suspect]
     Indication: COLON CANCER
     Dosage: 80 MG, 2 TABLETS DAILY
     Route: 048
     Dates: start: 201303
  4. ANTIHYPERTENSIVES [Concomitant]

REACTIONS (6)
  - Blister [Not Recovered/Not Resolved]
  - Blister [Not Recovered/Not Resolved]
  - Rash [Not Recovered/Not Resolved]
  - Blood pressure systolic increased [Not Recovered/Not Resolved]
  - Skin exfoliation [Not Recovered/Not Resolved]
  - Pain in extremity [Not Recovered/Not Resolved]
